FAERS Safety Report 17600039 (Version 4)
Quarter: 2022Q2

REPORT INFORMATION
  Report Type: Report from Study
  Country: JP (occurrence: JP)
  Receive Date: 20200330
  Receipt Date: 20220526
  Transmission Date: 20220721
  Serious: Yes (Other)
  Sender: FDA-Public Use
  Company Number: JP-SHIRE-JP202011378AA

PATIENT
  Age: 1 Year
  Sex: Male

DRUGS (49)
  1. VELAGLUCERASE ALFA [Suspect]
     Active Substance: VELAGLUCERASE ALFA
     Indication: Gaucher^s disease type II
     Dosage: 60 INTERNATIONAL UNIT/KILOGRAM, Q2WEEKS
     Route: 042
     Dates: start: 20190828
  2. INCREMIN [Concomitant]
     Indication: Product used for unknown indication
     Dosage: 4 MILLILITER
     Route: 048
     Dates: end: 20200730
  3. INCREMIN [Concomitant]
     Indication: Mineral supplementation
  4. VALPROATE SODIUM [Concomitant]
     Active Substance: VALPROATE SODIUM
     Indication: Product used for unknown indication
     Dosage: 1.4-5 MILLILITER
     Route: 048
  5. VALPROATE SODIUM [Concomitant]
     Active Substance: VALPROATE SODIUM
     Indication: Gaucher^s disease type II
     Dosage: 3-6 MILLILITER
     Route: 048
  6. VALPROATE SODIUM [Concomitant]
     Active Substance: VALPROATE SODIUM
     Dosage: 1.4 MILLILITER
     Route: 048
     Dates: end: 20190829
  7. VALPROATE SODIUM [Concomitant]
     Active Substance: VALPROATE SODIUM
     Dosage: 3 MILLILITER
     Route: 048
     Dates: start: 20190830, end: 20191022
  8. VALPROATE SODIUM [Concomitant]
     Active Substance: VALPROATE SODIUM
     Dosage: 4 MILLILITER
     Route: 048
     Dates: start: 20191023, end: 20191205
  9. VALPROATE SODIUM [Concomitant]
     Active Substance: VALPROATE SODIUM
     Dosage: 5 MILLILITER
     Route: 048
     Dates: start: 20191206, end: 20200116
  10. VALPROATE SODIUM [Concomitant]
     Active Substance: VALPROATE SODIUM
     Dosage: 4 MILLILITER
     Route: 048
     Dates: start: 20200117, end: 20200409
  11. VALPROATE SODIUM [Concomitant]
     Active Substance: VALPROATE SODIUM
     Dosage: 3 MILLILITER
     Route: 048
     Dates: start: 20200410, end: 20200423
  12. VALPROATE SODIUM [Concomitant]
     Active Substance: VALPROATE SODIUM
     Dosage: 4 MILLILITER
     Route: 048
     Dates: start: 20200424, end: 20200730
  13. VALPROATE SODIUM [Concomitant]
     Active Substance: VALPROATE SODIUM
     Dosage: 6 MILLILITER
     Route: 048
     Dates: start: 20200731
  14. LEVOCARNITINE [Concomitant]
     Active Substance: LEVOCARNITINE
     Indication: Prophylaxis
     Dosage: 1.4 MILLILITER
     Route: 065
     Dates: end: 20191107
  15. LEVOCARNITINE [Concomitant]
     Active Substance: LEVOCARNITINE
     Indication: Product used for unknown indication
     Dosage: 5 MILLILITER
     Route: 065
  16. LEVOCARNITINE [Concomitant]
     Active Substance: LEVOCARNITINE
     Dosage: 1 DOSAGE FORM
     Route: 048
     Dates: start: 20191108
  17. FAMOTIDINE [Concomitant]
     Active Substance: FAMOTIDINE
     Indication: Product used for unknown indication
     Dosage: 0.1 GRAM
     Route: 048
     Dates: end: 20190901
  18. FAMOTIDINE [Concomitant]
     Active Substance: FAMOTIDINE
     Indication: Prophylaxis
  19. WAKOBITAL [Concomitant]
     Indication: Sedation
     Dosage: 25 MILLILITER
     Route: 054
     Dates: start: 20190831, end: 20190907
  20. CERCINE [Concomitant]
     Active Substance: DIAZEPAM
     Indication: Sedation
     Dosage: 7.2 MILLIGRAM
     Route: 048
     Dates: start: 20190831, end: 20190907
  21. TRICLOFOS SODIUM [Concomitant]
     Active Substance: TRICLOFOS SODIUM
     Indication: Product used for unknown indication
     Dosage: 5 MILLILITER
     Route: 048
     Dates: start: 20190902, end: 20191029
  22. TRICLOFOS SODIUM [Concomitant]
     Active Substance: TRICLOFOS SODIUM
     Indication: Gaucher^s disease type II
     Dosage: 8 MILLILITER
     Route: 048
     Dates: start: 20200515
  23. ACETAMINOPHEN [Concomitant]
     Active Substance: ACETAMINOPHEN
     Indication: Product used for unknown indication
     Dosage: 100 MILLIGRAM
     Route: 054
     Dates: start: 20190906, end: 20191029
  24. ACETAMINOPHEN [Concomitant]
     Active Substance: ACETAMINOPHEN
     Indication: Gaucher^s disease type II
     Dosage: 100 MILLIGRAM
     Route: 054
     Dates: start: 20200514
  25. DIAZEPAM [Concomitant]
     Active Substance: DIAZEPAM
     Indication: Product used for unknown indication
     Dosage: 4 MILLIGRAM
     Route: 054
     Dates: start: 20191206
  26. DIAZEPAM [Concomitant]
     Active Substance: DIAZEPAM
     Indication: Gaucher^s disease type II
  27. RHINOJET [Concomitant]
     Indication: Product used for unknown indication
     Dosage: 2 MILLILITER
     Route: 050
     Dates: start: 20191213
  28. RHINOJET [Concomitant]
     Indication: Gaucher^s disease type II
  29. Glycyron [Concomitant]
     Indication: Product used for unknown indication
     Dosage: 1 DOSAGE FORM
     Route: 048
     Dates: start: 20200107
  30. RIVOTRIL [Concomitant]
     Active Substance: CLONAZEPAM
     Indication: Product used for unknown indication
     Dosage: 0.15-0.25 MILLIGRAM
     Route: 048
     Dates: start: 20200214
  31. RIVOTRIL [Concomitant]
     Active Substance: CLONAZEPAM
     Indication: Gaucher^s disease type II
     Dosage: 0.15 MILLIGRAM
     Route: 048
     Dates: start: 20200214, end: 20200618
  32. RIVOTRIL [Concomitant]
     Active Substance: CLONAZEPAM
     Indication: Osteopathic treatment
     Dosage: 0.28 MILLILITER
     Route: 048
     Dates: start: 20200619
  33. ACYCLOVIR SODIUM [Concomitant]
     Active Substance: ACYCLOVIR SODIUM
     Indication: Infection
     Dosage: 105 MILLIGRAM
     Route: 042
     Dates: end: 20190829
  34. AMPICILLIN SODIUM\SULBACTAM SODIUM [Concomitant]
     Active Substance: AMPICILLIN SODIUM\SULBACTAM SODIUM
     Indication: Infection
     Dosage: 0.9 GRAM
     Route: 042
     Dates: end: 20190913
  35. AMPICILLIN SODIUM\SULBACTAM SODIUM [Concomitant]
     Active Substance: AMPICILLIN SODIUM\SULBACTAM SODIUM
     Dosage: 1.35 GRAM
     Route: 042
     Dates: start: 20200514, end: 20200518
  36. FUROSEMIDE [Concomitant]
     Active Substance: FUROSEMIDE
     Indication: Gaucher^s disease type II
     Dosage: 0.8 MILLILITER
     Route: 042
     Dates: start: 20190829, end: 20190829
  37. FENTANYL [Concomitant]
     Active Substance: FENTANYL
     Indication: Sedation
     Dosage: 0.03 MILLIGRAM
     Route: 042
     Dates: end: 20190903
  38. PIPERACILLIN SODIUM [Concomitant]
     Active Substance: PIPERACILLIN SODIUM
     Indication: Infection
     Dosage: 0.9 GRAM
     Route: 042
     Dates: start: 20190913, end: 20190917
  39. HYDROXYZINE HYDROCHLORIDE [Concomitant]
     Active Substance: HYDROXYZINE HYDROCHLORIDE
     Indication: Premedication
     Dosage: 10 MILLIGRAM
     Route: 042
     Dates: start: 20190828, end: 20190918
  40. SOLU-CORTEF [Concomitant]
     Active Substance: HYDROCORTISONE SODIUM SUCCINATE
     Indication: Premedication
     Dosage: 50 MILLIGRAM
     Route: 042
     Dates: start: 20190828, end: 20190918
  41. PROCATEROL HYDROCHLORIDE [Concomitant]
     Active Substance: PROCATEROL HYDROCHLORIDE
     Indication: Product used for unknown indication
     Dosage: 0.2 MILLILITER
     Route: 050
     Dates: start: 20191213
  42. PROCATEROL HYDROCHLORIDE [Concomitant]
     Active Substance: PROCATEROL HYDROCHLORIDE
     Indication: Gaucher^s disease type II
  43. CHLORAL HYDRATE [Concomitant]
     Active Substance: CHLORAL HYDRATE
     Indication: Product used for unknown indication
     Dosage: 500 MILLIGRAM
     Route: 054
     Dates: start: 20200514, end: 20200528
  44. CHLORAL HYDRATE [Concomitant]
     Active Substance: CHLORAL HYDRATE
     Indication: Gaucher^s disease type II
  45. DIETARY SUPPLEMENT\PROBIOTICS [Concomitant]
     Active Substance: DIETARY SUPPLEMENT\PROBIOTICS
     Indication: Product used for unknown indication
     Dosage: 1 GRAM
     Route: 048
     Dates: start: 20200702, end: 20200716
  46. DIETARY SUPPLEMENT\PROBIOTICS [Concomitant]
     Active Substance: DIETARY SUPPLEMENT\PROBIOTICS
     Indication: Gaucher^s disease type II
  47. THIOPENTAL [Concomitant]
     Active Substance: THIOPENTAL
     Indication: Sedation
     Dosage: 50 MILLIGRAM
     Route: 042
     Dates: start: 20200428, end: 20200501
  48. FOSPHENYTOIN SODIUM [Concomitant]
     Active Substance: FOSPHENYTOIN SODIUM
     Indication: Product used for unknown indication
     Dosage: 225 MILLIGRAM
     Route: 065
     Dates: start: 20200703, end: 20200703
  49. FOSPHENYTOIN SODIUM [Concomitant]
     Active Substance: FOSPHENYTOIN SODIUM
     Indication: Gaucher^s disease type II

REACTIONS (5)
  - Respiratory arrest [Unknown]
  - Laryngospasm [Unknown]
  - Femur fracture [Recovered/Resolved]
  - Cyanosis [Recovered/Resolved]
  - Hepatic enzyme increased [Recovered/Resolved]

NARRATIVE: CASE EVENT DATE: 20191023
